FAERS Safety Report 8030186-1 (Version None)
Quarter: 2012Q1

REPORT INFORMATION
  Report Type: 
  Country: None (occurrence: None)
  Receive Date: 20120105
  Receipt Date: 20111221
  Transmission Date: 20120608
  Serious: Yes (Other)
  Sender: FDA-Public Use
  Company Number: TPA2011A08677

PATIENT
  Age: 68 Year
  Sex: Male

DRUGS (1)
  1. ACTOS [Suspect]
     Dosage: 15 MG, 1 IN 1 D, PER ORAL
     Route: 048
     Dates: start: 20030101, end: 20110701

REACTIONS (2)
  - BLADDER CANCER [None]
  - RENAL CANCER [None]
